FAERS Safety Report 23170288 (Version 1)
Quarter: 2023Q4

REPORT INFORMATION
  Report Type: Spontaneous
  Country: US (occurrence: US)
  Receive Date: 20231110
  Receipt Date: 20231110
  Transmission Date: 20240109
  Serious: Yes (Other)
  Sender: FDA-Public Use
  Company Number: US-AMGEN-USASP2023198999

PATIENT

DRUGS (2)
  1. CARFILZOMIB [Suspect]
     Active Substance: CARFILZOMIB
     Indication: Immune tolerance induction
     Dosage: UNK, 16-DAY CYCLE OF 6 DOSES
     Route: 065
  2. CARFILZOMIB [Suspect]
     Active Substance: CARFILZOMIB
     Indication: Off label use

REACTIONS (4)
  - Cytopenia [Unknown]
  - Acute kidney injury [Unknown]
  - Transplant rejection [Unknown]
  - Off label use [Unknown]
